FAERS Safety Report 10530442 (Version 5)
Quarter: 2016Q2

REPORT INFORMATION
  Report Type: Spontaneous
  Country: US (occurrence: US)
  Receive Date: 20141021
  Receipt Date: 20160621
  Transmission Date: 20160815
  Serious: Yes (Hospitalization, Other)
  Sender: FDA-Public Use
  Company Number: US-ASTRAZENECA-2014SE74382

PATIENT
  Age: 67 Year
  Sex: Female
  Weight: 56.7 kg

DRUGS (12)
  1. SYMBICORT [Suspect]
     Active Substance: BUDESONIDE\FORMOTEROL FUMARATE DIHYDRATE
     Indication: ASTHMA
     Dosage: 320 UG BID
     Route: 055
  2. SPIRNOLACTONE [Concomitant]
  3. LEVOTHYROXINE. [Concomitant]
     Active Substance: LEVOTHYROXINE
     Indication: THYROID DISORDER
     Route: 048
  4. CARVEDILOL. [Concomitant]
     Active Substance: CARVEDILOL
     Indication: CARDIAC DISORDER
     Dates: start: 20150512
  5. ALBUTEROL. [Concomitant]
     Active Substance: ALBUTEROL
     Route: 055
  6. SYMBICORT [Suspect]
     Active Substance: BUDESONIDE\FORMOTEROL FUMARATE DIHYDRATE
     Indication: ASTHMA
     Dosage: 160/4.5, 1 PUFF TWICE DAILY
     Route: 055
     Dates: start: 2005
  7. SYMBICORT [Suspect]
     Active Substance: BUDESONIDE\FORMOTEROL FUMARATE DIHYDRATE
     Indication: ASTHMA
     Dosage: 160/4.5 MCG, 320 UG, 2 PUFF BID
     Route: 055
     Dates: start: 201505
  8. POTASSIUM MEDICATION [Concomitant]
  9. LIPITOR [Concomitant]
     Active Substance: ATORVASTATIN CALCIUM
     Dates: start: 20150512
  10. BABY ASPIRIN [Concomitant]
     Active Substance: ASPIRIN
  11. SYMBICORT [Suspect]
     Active Substance: BUDESONIDE\FORMOTEROL FUMARATE DIHYDRATE
     Indication: ASTHMA
     Dosage: 160/4.5 MCG, 160 UG, 1 PUFF, BID
     Route: 055
     Dates: start: 2008, end: 2015
  12. LISINOPRIL. [Suspect]
     Active Substance: LISINOPRIL
     Indication: HYPERTENSION
     Route: 048
     Dates: start: 20150512

REACTIONS (10)
  - Pneumonia [Unknown]
  - Staphylococcus test positive [Unknown]
  - Arteriosclerosis [Unknown]
  - Dyspnoea [Unknown]
  - Hypoacusis [Unknown]
  - Off label use [Recovered/Resolved]
  - Myocardial infarction [Unknown]
  - Malaise [Unknown]
  - Lung disorder [Unknown]
  - Hypertension [Unknown]

NARRATIVE: CASE EVENT DATE: 2005
